FAERS Safety Report 18214928 (Version 1)
Quarter: 2020Q3

REPORT INFORMATION
  Report Type: Report from Study
  Country: US (occurrence: US)
  Receive Date: 20200831
  Receipt Date: 20200831
  Transmission Date: 20201103
  Serious: Yes (Other)
  Sender: FDA-Public Use
  Company Number: US-GILEAD-2020-0492466

PATIENT
  Age: 63 Year
  Sex: Male

DRUGS (1)
  1. AXICABTAGENE CILOLEUCEL [Suspect]
     Active Substance: AXICABTAGENE CILOLEUCEL
     Indication: B-CELL LYMPHOMA REFRACTORY
     Dosage: UNK; INFUSION
     Route: 042
     Dates: start: 20190103, end: 20190103

REACTIONS (9)
  - Haemoglobin decreased [Unknown]
  - Hypophagia [Unknown]
  - Ageusia [Recovered/Resolved with Sequelae]
  - Cytokine release syndrome [Recovered/Resolved]
  - Agitation [Recovered/Resolved]
  - General physical health deterioration [Not Recovered/Not Resolved]
  - Gait inability [Recovering/Resolving]
  - Depressed level of consciousness [Recovered/Resolved]
  - Weight decreased [Recovering/Resolving]

NARRATIVE: CASE EVENT DATE: 20190106
